FAERS Safety Report 5740949-0 (Version None)
Quarter: 2008Q2

REPORT INFORMATION
  Report Type: 
  Country: None (occurrence: None)
  Receive Date: 20080516
  Receipt Date: 20080507
  Transmission Date: 20081010
  Serious: Yes (Other)
  Sender: FDA-Public Use
  Company Number: AR-PFIZER INC-2008030399

PATIENT
  Sex: Female

DRUGS (3)
  1. ZOLOFT [Suspect]
     Indication: DEPRESSION
     Route: 048
  2. ZOLOFT [Suspect]
     Indication: ANXIETY
  3. CLONAZEPAM [Concomitant]
     Route: 048
     Dates: start: 20050101

REACTIONS (4)
  - AGITATION [None]
  - EUPHORIC MOOD [None]
  - FEELING ABNORMAL [None]
  - HEADACHE [None]
